FAERS Safety Report 7483395-4 (Version None)
Quarter: 2011Q2

REPORT INFORMATION
  Report Type: 
  Country: None (occurrence: None)
  Receive Date: 20110517
  Receipt Date: 20110503
  Transmission Date: 20111010
  Serious: Yes (Other)
  Sender: FDA-Public Use
  Company Number: US-JNJFOC-20110503775

PATIENT
  Sex: Male
  Weight: 81.65 kg

DRUGS (7)
  1. FENTANYL [Suspect]
     Route: 062
     Dates: start: 20110101, end: 20110101
  2. ZANAFLEX [Concomitant]
     Indication: PRODUCT USED FOR UNKNOWN INDICATION
     Route: 048
  3. FENTANYL [Suspect]
     Indication: BACK PAIN
     Route: 062
     Dates: start: 20110101, end: 20110429
  4. INHALERS (UNSPECIFIED) [Concomitant]
     Indication: DYSPNOEA
     Route: 055
  5. FENTANYL-100 [Suspect]
     Indication: BACK PAIN
     Route: 062
     Dates: start: 20110429
  6. NEURONTIN [Concomitant]
     Indication: NERVOUSNESS
     Route: 048
  7. PERCOCET [Concomitant]
     Indication: BREAKTHROUGH PAIN
     Route: 048

REACTIONS (3)
  - PRODUCT ADHESION ISSUE [None]
  - HYPERHIDROSIS [None]
  - WEIGHT INCREASED [None]
